FAERS Safety Report 7906847-9 (Version None)
Quarter: 2011Q4

REPORT INFORMATION
  Report Type: 
  Country: None (occurrence: None)
  Receive Date: 20111109
  Receipt Date: 20111109
  Transmission Date: 20120403
  Serious: Yes (Death)
  Sender: FDA-Public Use
  Company Number: None

PATIENT
  Sex: Female

DRUGS (15)
  1. MIDAZOLAM [Concomitant]
  2. ZOSYN [Concomitant]
  3. FLAGYL [Concomitant]
  4. PROPOFOL [Concomitant]
  5. VANC [Concomitant]
  6. SOLU-MEDROL [Concomitant]
  7. DILTIAZEM HCL [Concomitant]
  8. PLAK VAC MOUTHWASH (.05% CETYLPYRIDINIUM CHLORIDE) TRADEMARK [Suspect]
     Indication: DENTAL DISORDER PROPHYLAXIS
     Dosage: PLAC VAK ORAL CARE SYSTEM PER REPORT Q 4HOURS PO
     Route: 048
     Dates: start: 20110902, end: 20111007
  9. PLAK VAC MOUTHWASH (.05% CETYLPYRIDINIUM CHLORIDE) TRADEMARK [Suspect]
     Indication: PROPHYLAXIS
     Dosage: PLAC VAK ORAL CARE SYSTEM PER REPORT Q 4HOURS PO
     Route: 048
     Dates: start: 20110902, end: 20111007
  10. PLAK VAC MOUTHWASH (.05% CETYLPYRIDINIUM CHLORIDE) TRADEMARK [Suspect]
     Indication: PNEUMONIA
     Dosage: PLAC VAK ORAL CARE SYSTEM PER REPORT Q 4HOURS PO
     Route: 048
     Dates: start: 20110902, end: 20111007
  11. FENTANYL [Concomitant]
  12. PEPCID [Concomitant]
  13. LASIX [Concomitant]
  14. INSULIN [Concomitant]
  15. CANCIDAS [Concomitant]

REACTIONS (8)
  - LEUKOCYTOSIS [None]
  - BURKHOLDERIA TEST POSITIVE [None]
  - LUNG INFILTRATION [None]
  - RESPIRATORY FAILURE [None]
  - PRODUCT CONTAMINATION [None]
  - ACUTE ABDOMEN [None]
  - ANASTOMOTIC LEAK [None]
  - PYREXIA [None]
